FAERS Safety Report 18199023 (Version 1)
Quarter: 2020Q3

REPORT INFORMATION
  Report Type: Spontaneous
  Country: GB (occurrence: GB)
  Receive Date: 20200826
  Receipt Date: 20200826
  Transmission Date: 20201103
  Serious: Yes (Disabling)
  Sender: FDA-Public Use
  Company Number: GB-TEVA-2020-GB-1819738

PATIENT
  Age: 55 Year
  Sex: Male

DRUGS (2)
  1. NITRAZEPAM [Suspect]
     Active Substance: NITRAZEPAM
     Indication: ALCOHOL DETOXIFICATION
     Dosage: 10 MG
     Route: 065
     Dates: start: 20080513
  2. DIAZEPAM. [Suspect]
     Active Substance: DIAZEPAM
     Indication: ALCOHOL DETOXIFICATION
     Dosage: 20 MG
     Route: 065
     Dates: start: 20080513

REACTIONS (8)
  - Cardiac disorder [Unknown]
  - Coma [Unknown]
  - Wernicke^s encephalopathy [Unknown]
  - Spinal pain [Unknown]
  - Agitation [Unknown]
  - Neuropathy peripheral [Unknown]
  - Anxiety [Unknown]
  - Fall [Unknown]

NARRATIVE: CASE EVENT DATE: 20080514
